FAERS Safety Report 6127239-1 (Version None)
Quarter: 2009Q1

REPORT INFORMATION
  Report Type: 
  Country: None (occurrence: None)
  Receive Date: 20090318
  Receipt Date: 20090303
  Transmission Date: 20090719
  Serious: Yes (Death)
  Sender: FDA-Public Use
  Company Number: 09P-013-0558367-00

PATIENT
  Sex: Male

DRUGS (6)
  1. SYNAGIS [Suspect]
     Indication: ANTIVIRAL PROPHYLAXIS
     Dosage: 80 MG, ONCE
     Dates: start: 20081010, end: 20081010
  2. CHLORTALIDONE (CHLORTALIDONE) [Concomitant]
  3. MOTILLIUM (MOTILLIUM) [Concomitant]
  4. OMEPRAZOLE SODIUM (OMEPRAZOLE SODIUM) [Concomitant]
  5. ENALAPRIL MALEATE [Concomitant]
  6. GEVITAL (ERGOCALCIFEROL, ASCORBIC ACID, PYRIDOXINE HYDROCHLORIDE, TOCO [Concomitant]

REACTIONS (1)
  - CARDIAC PROCEDURE COMPLICATION [None]
